FAERS Safety Report 7325230-0 (Version None)
Quarter: 2011Q1

REPORT INFORMATION
  Report Type: 
  Country: None (occurrence: None)
  Receive Date: 20110302
  Receipt Date: 20110221
  Transmission Date: 20110831
  Serious: No
  Sender: FDA-Public Use
  Company Number: US-PFIZER INC-2011002982

PATIENT
  Sex: Female

DRUGS (3)
  1. XALATAN [Suspect]
  2. XALATAN [Suspect]
  3. XALATAN [Suspect]
     Dosage: UNK

REACTIONS (2)
  - EYE DISORDER [None]
  - MADAROSIS [None]
